FAERS Safety Report 6042446-4 (Version None)
Quarter: 2009Q1

REPORT INFORMATION
  Report Type: 
  Country: None (occurrence: None)
  Receive Date: 20090116
  Receipt Date: 20090113
  Transmission Date: 20090719
  Serious: Yes (Life-Threatening, Hospitalization)
  Sender: FDA-Public Use
  Company Number: CO-B.I. PHARMACEUTICALS,INC./RIDGEFIELD-2009-RA-00017RA

PATIENT
  Age: 63 Year
  Sex: Female
  Weight: 56 kg

DRUGS (1)
  1. MOBIC [Suspect]
     Indication: ARTHRITIS
     Dosage: 15MG
     Route: 048
     Dates: start: 20081208, end: 20090104

REACTIONS (3)
  - DYSPEPSIA [None]
  - PULMONARY OEDEMA [None]
  - RESPIRATORY FAILURE [None]
